FAERS Safety Report 21662999 (Version 1)
Quarter: 2022Q4

REPORT INFORMATION
  Report Type: Spontaneous
  Country: US (occurrence: US)
  Receive Date: 20221130
  Receipt Date: 20221130
  Transmission Date: 20230113
  Serious: Yes (Life-Threatening)
  Sender: FDA-Public Use
  Company Number: US-GLAXOSMITHKLINE-US2022AMR175064

PATIENT

DRUGS (1)
  1. BENLYSTA [Suspect]
     Active Substance: BELIMUMAB
     Indication: Systemic lupus erythematosus
     Dosage: 200 MG/ML, WE SINCE 3 MONTHS
     Route: 058

REACTIONS (17)
  - Rash [Unknown]
  - Skin exfoliation [Unknown]
  - Burning sensation [Unknown]
  - Skin ulcer [Unknown]
  - Eye pain [Unknown]
  - Headache [Unknown]
  - Memory impairment [Unknown]
  - Dizziness [Unknown]
  - Fatigue [Unknown]
  - Muscular weakness [Unknown]
  - Depressed mood [Unknown]
  - Depression [Unknown]
  - Balance disorder [Unknown]
  - Condition aggravated [Unknown]
  - Infection [Unknown]
  - Malaise [Unknown]
  - Product storage error [Unknown]
